FAERS Safety Report 8762935 (Version 5)
Quarter: 2013Q1

REPORT INFORMATION
  Report Type: Spontaneous
  Country: CA (occurrence: None)
  Receive Date: 20120823
  Receipt Date: 20130204
  Transmission Date: 20140127
  Serious: Yes (Other)
  Sender: FDA-Public Use
  Company Number: 2012033149

PATIENT
  Age: 69 Year
  Sex: Male

DRUGS (4)
  1. PRIVIGEN (IMMUNE GLOBULIN INTRAVENOUS (HUMAN) 10% LIQUID) [Suspect]
     Indication: IDIOPATHIC THROMBOCYTOPENIC PURPURA
     Dosage: MAXIMUM RATE 250 ML/HR
     Route: 042
     Dates: start: 20120621, end: 20120621
  2. METFORMIN (METFORMIN) [Concomitant]
  3. LIPITOR (ATORVASTATIN CALCIUM) [Concomitant]
  4. COUMADIN (WARFARIN SODIUM) [Concomitant]

REACTIONS (6)
  - Haemolysis [None]
  - Back pain [None]
  - Headache [None]
  - Blood lactate dehydrogenase increased [None]
  - Haemoglobin decreased [None]
  - Blood bilirubin increased [None]
